FAERS Safety Report 7480973-3 (Version None)
Quarter: 2011Q2

REPORT INFORMATION
  Report Type: 
  Country: None (occurrence: None)
  Receive Date: 20110512
  Receipt Date: 20110512
  Transmission Date: 20111010
  Serious: No
  Sender: FDA-Public Use
  Company Number: None

PATIENT
  Age: 20 Year
  Sex: Male
  Weight: 57.6068 kg

DRUGS (1)
  1. CLINDAMYCIN [Suspect]
     Indication: TOOTH INFECTION
     Dosage: 300MG 2-3XD PO
     Route: 048
     Dates: start: 20110422, end: 20110425

REACTIONS (10)
  - CHEST PAIN [None]
  - NAUSEA [None]
  - MUSCLE SPASMS [None]
  - PAIN [None]
  - DIARRHOEA [None]
  - ARTHRALGIA [None]
  - TREMOR [None]
  - OCULAR ICTERUS [None]
  - PYREXIA [None]
  - CHEST DISCOMFORT [None]
